FAERS Safety Report 24938631 (Version 2)
Quarter: 2025Q3

REPORT INFORMATION
  Report Type: Spontaneous
  Country: US (occurrence: US)
  Receive Date: 20250206
  Receipt Date: 20250819
  Transmission Date: 20251021
  Serious: No
  Sender: SANOFI AVENTIS
  Company Number: US-SA-2025SA036080

PATIENT
  Age: 42 Year
  Sex: Male

DRUGS (1)
  1. DUPIXENT [Suspect]
     Active Substance: DUPILUMAB
     Indication: Chronic rhinosinusitis with nasal polyps
     Dosage: 300 MG, QOW
     Route: 058
     Dates: start: 20200821

REACTIONS (2)
  - Infection [Unknown]
  - Drug ineffective [Unknown]
